FAERS Safety Report 6505839-4 (Version None)
Quarter: 2009Q4

REPORT INFORMATION
  Report Type: 
  Country: None (occurrence: None)
  Receive Date: 20091218
  Receipt Date: 20091207
  Transmission Date: 20100525
  Serious: Yes (Hospitalization)
  Sender: FDA-Public Use
  Company Number: US-JNJFOC-20091204379

PATIENT
  Sex: Female
  Weight: 64 kg

DRUGS (9)
  1. INFLIXIMAB [Suspect]
     Route: 042
  2. INFLIXIMAB [Suspect]
     Route: 042
  3. INFLIXIMAB [Suspect]
     Route: 042
  4. INFLIXIMAB [Suspect]
     Indication: INFLAMMATORY BOWEL DISEASE
     Dosage: INDUCTION DOSE OF WEEK 0, 2 AND 6
     Route: 042
  5. AZATHIOPRINE [Suspect]
     Indication: DRUG USE FOR UNKNOWN INDICATION
  6. MESALAZINE (5-ASA) [Concomitant]
     Indication: DRUG USE FOR UNKNOWN INDICATION
     Route: 048
  7. PREDNISONE [Concomitant]
     Indication: DRUG USE FOR UNKNOWN INDICATION
  8. ANTIHISTAMINES [Concomitant]
     Indication: PREMEDICATION
  9. ACETAMINOPHEN [Concomitant]
     Indication: PREMEDICATION

REACTIONS (6)
  - DISEASE PROGRESSION [None]
  - HERPES VIRUS INFECTION [None]
  - INFLAMMATORY BOWEL DISEASE [None]
  - LYMPHOPROLIFERATIVE DISORDER [None]
  - PULMONARY OEDEMA [None]
  - VOMITING [None]
